FAERS Safety Report 21274041 (Version 4)
Quarter: 2024Q1

REPORT INFORMATION
  Report Type: Spontaneous
  Country: SK (occurrence: SK)
  Receive Date: 20220831
  Receipt Date: 20240105
  Transmission Date: 20240410
  Serious: Yes (Other)
  Sender: FDA-Public Use
  Company Number: SK-Zentiva-2022-ZT-006943

PATIENT
  Sex: Female

DRUGS (4)
  1. METHYLPREDNISOLONE SODIUM SUCCINATE [Suspect]
     Active Substance: METHYLPREDNISOLONE SODIUM SUCCINATE
     Dosage: 1G/1KG/DAY 3 CONSECUTIVE DAYS
     Route: 042
  2. PREDNISONE [Suspect]
     Active Substance: PREDNISONE
     Indication: Thrombocytopenia
     Dosage: 1MG/KG/DAY
     Route: 048
  3. ETHAMSYLATE [Concomitant]
     Active Substance: ETHAMSYLATE
     Indication: Thrombocytopenia
     Dosage: UNK
  4. IMMUNE GLOBULIN NOS [Concomitant]
     Active Substance: IMMUNE GLOBULIN NOS
     Indication: Thrombocytopenia
     Dosage: UNK
     Route: 042

REACTIONS (8)
  - Thrombocytopenia [Recovered/Resolved]
  - Drug ineffective for unapproved indication [Unknown]
  - Product use in unapproved indication [Unknown]
  - Hyperglycaemia [Unknown]
  - Hypertension [Unknown]
  - Cushingoid [Unknown]
  - Insomnia [Unknown]
  - Depression [Unknown]
